FAERS Safety Report 7301356-2 (Version None)
Quarter: 2011Q1

REPORT INFORMATION
  Report Type: 
  Country: None (occurrence: None)
  Receive Date: 20110113
  Receipt Date: 20100928
  Transmission Date: 20110831
  Serious: No
  Sender: FDA-Public Use
  Company Number: US-001118

PATIENT
  Sex: Male
  Weight: 76 kg

DRUGS (3)
  1. ANTI-ASTHMATICS [Concomitant]
  2. MULTIVITAMINS /00831701/ [Concomitant]
  3. KUVAN [Suspect]
     Indication: PHENYLKETONURIA
     Dosage: (1500 MG QD ORAL)
     Route: 048
     Dates: start: 20080318, end: 20100909

REACTIONS (2)
  - HAEMORRHOIDS [None]
  - HAEMATOCHEZIA [None]
